FAERS Safety Report 10193606 (Version 1)
Quarter: 2014Q2

REPORT INFORMATION
  Report Type: Spontaneous
  Country: US (occurrence: US)
  Receive Date: 20140524
  Receipt Date: 20140524
  Transmission Date: 20141212
  Serious: No
  Sender: FDA-Public Use
  Company Number: US-SA-2013SA134731

PATIENT
  Age: 66 Year
  Sex: Female

DRUGS (3)
  1. LANTUS SOLOSTAR [Suspect]
     Indication: TYPE 2 DIABETES MELLITUS
     Dosage: PRODUCT START DATE 4 YEARS DOSE:30 UNIT(S)
     Route: 051
  2. SOLOSTAR [Concomitant]
     Dosage: PRODUCT START DATE 4 YEARS
  3. HUMALOG [Concomitant]

REACTIONS (1)
  - Gait disturbance [Unknown]
